FAERS Safety Report 20778480 (Version 1)
Quarter: 2022Q2

REPORT INFORMATION
  Report Type: Spontaneous
  Country: US (occurrence: US)
  Receive Date: 20220503
  Receipt Date: 20220503
  Transmission Date: 20220721
  Serious: Yes (Other)
  Sender: FDA-Public Use
  Company Number: US-AMNEAL PHARMACEUTICALS-2021-AMRX-04084

PATIENT
  Age: 3 Year
  Sex: Female
  Weight: 12 kg

DRUGS (3)
  1. VIGABATRIN [Suspect]
     Active Substance: VIGABATRIN
     Indication: Infantile spasms
     Dosage: DOSE DECREASED, UNK
     Route: 048
     Dates: start: 202109, end: 2021
  2. VIGABATRIN [Suspect]
     Active Substance: VIGABATRIN
     Dosage: 13.5 MILLILITER, BID
     Route: 048
     Dates: end: 202109
  3. VIGABATRIN [Suspect]
     Active Substance: VIGABATRIN
     Dosage: 13.5 MILLILITER, BID
     Route: 048
     Dates: start: 2021

REACTIONS (1)
  - Seizure [Recovered/Resolved]

NARRATIVE: CASE EVENT DATE: 20210901
